FAERS Safety Report 8975716 (Version 1)
Quarter: 2012Q4

REPORT INFORMATION
  Report Type: 
  Country: US (occurrence: US)
  Receive Date: 20121219
  Receipt Date: 20121219
  Transmission Date: 20130627
  Serious: Yes (Other)
  Sender: FDA-Public Use
  Company Number: PHHY2011US51455

PATIENT
  Age: 47 Year
  Sex: Female

DRUGS (3)
  1. EXTAVIA [Suspect]
     Indication: MULTIPLE SCLEROSIS
     Dosage: 0.0625 mg, QOD
     Route: 058
     Dates: start: 20110602
  2. EXTAVIA [Suspect]
     Dosage: 0.25 mg, QOD
     Route: 058
     Dates: start: 20110602
  3. EXTAVIA [Suspect]
     Dosage: 0.25 mg, QOD
     Route: 058
     Dates: start: 20110603

REACTIONS (12)
  - Central nervous system lesion [Recovered/Resolved]
  - Dysphonia [Recovered/Resolved]
  - Throat irritation [Recovered/Resolved]
  - Constipation [Not Recovered/Not Resolved]
  - Menorrhagia [Recovered/Resolved]
  - Influenza like illness [Recovered/Resolved]
  - Headache [Recovered/Resolved]
  - Cold sweat [Recovered/Resolved]
  - Fatigue [Recovering/Resolving]
  - Injection site erythema [Recovering/Resolving]
  - Injection site discolouration [Recovering/Resolving]
  - White blood cell count decreased [Recovering/Resolving]
